FAERS Safety Report 21619823 (Version 1)
Quarter: 2022Q4

REPORT INFORMATION
  Report Type: Report from Study
  Country: US (occurrence: US)
  Receive Date: 20221121
  Receipt Date: 20221121
  Transmission Date: 20230112
  Serious: Yes (Other)
  Sender: FDA-Public Use
  Company Number: US-BRISTOL-MYERS SQUIBB COMPANY-2022-137146

PATIENT
  Age: 67 Year
  Sex: Female
  Weight: 73.4 kg

DRUGS (2)
  1. POMALYST [Suspect]
     Active Substance: POMALIDOMIDE
     Indication: Plasma cell myeloma
     Dosage: 21 DAYS OF 7 DAYS OFF
     Route: 048
     Dates: start: 20210728
  2. POMALYST [Suspect]
     Active Substance: POMALIDOMIDE
     Dosage: 14 DAYS ON 14 DAYS OFF
     Route: 048

REACTIONS (3)
  - Sleep disorder [Unknown]
  - Weight decreased [Recovering/Resolving]
  - Off label use [Unknown]
